FAERS Safety Report 8455169-9 (Version None)
Quarter: 2012Q2

REPORT INFORMATION
  Report Type: 
  Country: None (occurrence: None)
  Receive Date: 20120621
  Receipt Date: 20120612
  Transmission Date: 20120825
  Serious: Yes (Hospitalization, Other)
  Sender: FDA-Public Use
  Company Number: SK-ASTRAZENECA-2012SE31146

PATIENT
  Age: 30045 Day
  Sex: Male

DRUGS (10)
  1. AZD6140 [Suspect]
     Indication: CORONARY ARTERY DISEASE
     Route: 048
     Dates: start: 20110419, end: 20120508
  2. DENOREX SHAMPOO [Concomitant]
     Indication: PSORIASIS
     Route: 061
  3. QUINAPRIL [Concomitant]
     Indication: PROPHYLAXIS
     Route: 048
  4. LIPITOR [Concomitant]
     Indication: HYPERCHOLESTEROLAEMIA
     Route: 048
  5. PANTOPRAZOLE [Concomitant]
     Indication: GASTRITIS PROPHYLAXIS
     Route: 048
  6. SPIRIVA [Concomitant]
     Indication: CHRONIC OBSTRUCTIVE PULMONARY DISEASE
     Route: 048
  7. ASPIRIN [Concomitant]
     Route: 048
  8. METOPROLOL [Concomitant]
     Indication: ANGINA PECTORIS
     Route: 048
  9. ACETAMINOPHEN W/ CODEINE [Concomitant]
     Indication: PAIN
     Route: 048
  10. MADOPAR [Concomitant]
     Indication: PARKINSON'S DISEASE
     Route: 048

REACTIONS (1)
  - GASTRIC ULCER [None]
